FAERS Safety Report 10225610 (Version 1)
Quarter: 2014Q2

REPORT INFORMATION
  Report Type: Spontaneous
  Country: US (occurrence: US)
  Receive Date: 20140609
  Receipt Date: 20140609
  Transmission Date: 20141212
  Serious: No
  Sender: FDA-Public Use
  Company Number: US-ASTELLAS-2013US012983

PATIENT
  Age: 60 Year
  Sex: Male

DRUGS (8)
  1. PROGRAF [Suspect]
     Indication: RENAL TRANSPLANT
     Dosage: 1.5 MG IN AM, AND 1 MG IN PM)
     Route: 048
     Dates: start: 20050826
  2. CELLCEPT                           /01275102/ [Concomitant]
     Indication: RENAL TRANSPLANT
     Route: 048
  3. BACTRIUM DS [Concomitant]
     Indication: PRODUCT USED FOR UNKNOWN INDICATION
     Route: 065
  4. MAGNESIUM [Concomitant]
     Indication: PRODUCT USED FOR UNKNOWN INDICATION
     Route: 065
  5. PHOSPHA 250 NEUTRA [Concomitant]
     Indication: PRODUCT USED FOR UNKNOWN INDICATION
     Route: 065
  6. PREDNISONE [Concomitant]
     Indication: PRODUCT USED FOR UNKNOWN INDICATION
     Route: 048
  7. CLONIDINE [Concomitant]
     Indication: BLOOD PRESSURE
     Route: 065
  8. NORVASC [Concomitant]
     Indication: BLOOD PRESSURE
     Route: 065

REACTIONS (1)
  - Circumstance or information capable of leading to medication error [Unknown]
